FAERS Safety Report 12636758 (Version 1)
Quarter: 2016Q3

REPORT INFORMATION
  Report Type: Other
  Country: ES (occurrence: ES)
  Receive Date: 20160809
  Receipt Date: 20160809
  Transmission Date: 20161109
  Serious: Yes (Other)
  Sender: FDA-Public Use
  Company Number: ES-LUPIN PHARMACEUTICALS INC.-2016-03451

PATIENT
  Age: 46 Year
  Sex: Male

DRUGS (2)
  1. VALSARTAN. [Suspect]
     Active Substance: VALSARTAN
     Indication: SECONDARY AMYLOIDOSIS
     Route: 065
  2. PARICALCITOL. [Suspect]
     Active Substance: PARICALCITOL
     Indication: SECONDARY AMYLOIDOSIS
     Route: 065

REACTIONS (2)
  - Blood creatinine increased [Unknown]
  - Nephrotic syndrome [Unknown]
